FAERS Safety Report 24732774 (Version 1)
Quarter: 2024Q4

REPORT INFORMATION
  Report Type: Spontaneous
  Country: US (occurrence: US)
  Receive Date: 20241213
  Receipt Date: 20241213
  Transmission Date: 20250115
  Serious: No
  Sender: ABBVIE
  Company Number: US-ABBVIE-6044745

PATIENT
  Sex: Female

DRUGS (4)
  1. BOTOX [Suspect]
     Active Substance: ONABOTULINUMTOXINA
     Indication: Skin wrinkling
     Dosage: TIME INTERVAL: AS NECESSARY: 15 UNITS,?56 UNITS WHEN PATIENT CAME)
     Route: 065
     Dates: start: 20230421, end: 20230421
  2. BOTOX [Suspect]
     Active Substance: ONABOTULINUMTOXINA
     Indication: Skin wrinkling
     Dosage: TIME INTERVAL: AS NECESSARY: 15 UNITS,?56 UNITS WHEN PATIENT CAME)
     Route: 065
     Dates: start: 20230421, end: 20230421
  3. BOTOX [Suspect]
     Active Substance: ONABOTULINUMTOXINA
     Indication: Skin wrinkling
     Dosage: TIME INTERVAL: AS NECESSARY: 15 UNITS
     Route: 065
     Dates: start: 20230421, end: 20230421
  4. BOTOX [Suspect]
     Active Substance: ONABOTULINUMTOXINA
     Indication: Skin wrinkling
     Dosage: TIME INTERVAL: AS NECESSARY: 15 UNITS
     Route: 065
     Dates: start: 20230421, end: 20230421

REACTIONS (1)
  - Drug ineffective [Unknown]
